FAERS Safety Report 8611048-5 (Version None)
Quarter: 2012Q3

REPORT INFORMATION
  Report Type: 
  Country: None (occurrence: None)
  Receive Date: 20120822
  Receipt Date: 20120816
  Transmission Date: 20120928
  Serious: Yes (Other)
  Sender: FDA-Public Use
  Company Number: BR-PFIZER INC-2012200960

PATIENT
  Age: 76 Year
  Sex: Female

DRUGS (1)
  1. LYRICA [Suspect]
     Indication: FIBROMYALGIA
     Dosage: 1 CAPSULE OF 75 MG, EVERY 12 HOURS
     Route: 048

REACTIONS (7)
  - DIZZINESS [None]
  - UPPER LIMB FRACTURE [None]
  - BALANCE DISORDER [None]
  - DRY MOUTH [None]
  - FALL [None]
  - VISION BLURRED [None]
  - DECREASED APPETITE [None]
